FAERS Safety Report 9146836 (Version 2)
Quarter: 2013Q1

REPORT INFORMATION
  Report Type: Spontaneous
  Country: US (occurrence: None)
  Receive Date: 20130215
  Receipt Date: 20130312
  Transmission Date: 20140127
  Serious: Yes (Death)
  Sender: FDA-Public Use
  Company Number: 1302-197

PATIENT
  Sex: 0

DRUGS (1)
  1. EYLEA (AFLIBERCEPT)(AFLIBERCEPT) [Suspect]
     Dates: start: 20121102

REACTIONS (1)
  - Death [None]
